FAERS Safety Report 5162948-2 (Version None)
Quarter: 2006Q4

REPORT INFORMATION
  Report Type: 
  Country: None (occurrence: None)
  Receive Date: 20061201
  Receipt Date: 20061127
  Transmission Date: 20070319
  Serious: Yes (Death)
  Sender: FDA-Public Use
  Company Number: 2006UW26410

PATIENT
  Age: 21 Year
  Sex: Male

DRUGS (3)
  1. SEROQUEL [Suspect]
     Indication: AFFECTIVE DISORDER
     Dosage: 600 - 900 MG
     Route: 048
     Dates: start: 20010101
  2. TRILEPTAL [Concomitant]
     Route: 048
  3. VAGUS NERVE STIMULATOR [Concomitant]
     Indication: CONVULSION

REACTIONS (1)
  - DEATH [None]
